FAERS Safety Report 12506465 (Version 11)
Quarter: 2020Q2

REPORT INFORMATION
  Report Type: Report from Study
  Country: US (occurrence: US)
  Receive Date: 20160628
  Receipt Date: 20200519
  Transmission Date: 20200713
  Serious: Yes (Life-Threatening, Hospitalization, Other)
  Sender: FDA-Public Use
  Company Number: US-ACTELION-A-US2016-137893

PATIENT
  Age: 61 Year
  Sex: Female

DRUGS (35)
  1. OPSUMIT [Suspect]
     Active Substance: MACITENTAN
     Indication: PULMONARY ARTERIAL HYPERTENSION
     Dosage: 10 MG, QD
     Route: 048
     Dates: start: 20160526, end: 20160615
  2. HEPARIN [Concomitant]
     Active Substance: HEPARIN SODIUM
     Dosage: 25,000 UNIT 250ML
  3. PHENYLEPHRINE [Concomitant]
     Active Substance: PHENYLEPHRINE HYDROCHLORIDE
     Dosage: UNK UNK, CONT INFUS
     Route: 042
     Dates: start: 20160610
  4. POTASSIUM PHOSPHATE [Concomitant]
     Active Substance: POTASSIUM PHOSPHATE
     Dosage: 20 MMOL, PRN
     Route: 042
     Dates: start: 20160611
  5. VASOPRESSIN. [Concomitant]
     Active Substance: VASOPRESSIN
     Dosage: 0.4 UNIT/MIN, CONT INFUS
     Route: 042
     Dates: start: 20160610
  6. CHLORHEXIDIN [Concomitant]
     Active Substance: CHLORHEXIDINE
  7. MIDODRINE [Concomitant]
     Active Substance: MIDODRINE
     Dosage: 5 MG, QHS
  8. DEXTROSE. [Concomitant]
     Active Substance: DEXTROSE
     Dosage: 50% 25GM/50 ML
     Route: 042
  9. NOREPINEPHRINE. [Concomitant]
     Active Substance: NOREPINEPHRINE
     Dosage: UNK UNK, CONT INFUS
     Route: 042
     Dates: start: 20160609
  10. PANTOPRAZOLE [Concomitant]
     Active Substance: PANTOPRAZOLE
     Dosage: 40 UNK, Q12HRS
     Route: 042
     Dates: start: 20160609
  11. PIPERACILLIN AND TAZOBACTAM [Concomitant]
     Active Substance: PIPERACILLIN SODIUM\TAZOBACTAM SODIUM
  12. LACTULOSE. [Concomitant]
     Active Substance: LACTULOSE
     Dosage: 10 GM / 15 ML ORAL SYRUP
  13. PROPOFOL. [Concomitant]
     Active Substance: PROPOFOL
     Dosage: UNK, CONT INFUS
     Route: 042
     Dates: start: 20160611
  14. VITAMIN B COMPLEX WITH VITAMIN C + FOLIC ACID [Concomitant]
  15. TREPROSTINIL. [Concomitant]
     Active Substance: TREPROSTINIL
     Dosage: 10 MG, UNK
  16. CYCLOBENZAPRINE. [Concomitant]
     Active Substance: CYCLOBENZAPRINE
     Dosage: 10 MG, UNK
  17. DEXTROSE. [Concomitant]
     Active Substance: DEXTROSE
     Dosage: 40% 15 GM/37.5 GM
     Route: 048
  18. ZOLPIDEM [Concomitant]
     Active Substance: ZOLPIDEM TARTRATE
     Dosage: 5 MG, QHS
  19. ALBUTEROL W/IPRATROPIUM [Concomitant]
     Active Substance: ALBUTEROL\IPRATROPIUM
     Dosage: 3 ML, Q6HRS
     Route: 055
     Dates: start: 20160606
  20. CHOLESTYRAMINE. [Concomitant]
     Active Substance: CHOLESTYRAMINE
     Dosage: 4 GM/9 GM
     Dates: start: 20160628
  21. ACETAMINOPHEN. [Concomitant]
     Active Substance: ACETAMINOPHEN
     Dosage: 325 MG, Q4HRS
  22. MIDAZOLAM. [Concomitant]
     Active Substance: MIDAZOLAM
     Dosage: 2 MG, PRN
     Route: 042
     Dates: start: 20160609
  23. HEPARIN [Concomitant]
     Active Substance: HEPARIN SODIUM
     Dosage: 1,000 UNIT/ML, 4,000 UNIT 4 MLUNK
  24. HEPARIN [Concomitant]
     Active Substance: HEPARIN SODIUM
     Dosage: 1,000 UNIT/ML, 2,000 UNIT 2 ML
  25. REMODULIN [Concomitant]
     Active Substance: TREPROSTINIL
     Dosage: 11 MG, UNK
  26. HEPARIN [Concomitant]
     Active Substance: HEPARIN SODIUM
     Dosage: UNK UNK, CONT INFUS
     Route: 042
     Dates: start: 20160610, end: 20160613
  27. WARFARIN [Concomitant]
     Active Substance: WARFARIN
     Dosage: 3 UNK, UNK
     Dates: end: 20160601
  28. SEROQUEL [Concomitant]
     Active Substance: QUETIAPINE FUMARATE
  29. LISPRO INSULIN [Concomitant]
     Active Substance: INSULIN LISPRO
     Dosage: 100 U/ML, Q6HRS
     Route: 058
     Dates: start: 20160610
  30. SUCRALFATE. [Concomitant]
     Active Substance: SUCRALFATE
     Dosage: 1000 MG/10ML , BID
  31. GLUCAGON. [Concomitant]
     Active Substance: GLUCAGON
     Dosage: 1 MG/ 1 ML
  32. DOCUSATE PLUS SENNA [Concomitant]
     Active Substance: DOCUSATE SODIUM\SENNOSIDES A AND B
     Dosage: 2 TABS, QPM
     Dates: start: 20160509
  33. METHYLPREDNISOLONE. [Concomitant]
     Active Substance: METHYLPREDNISOLONE
     Dosage: 40 MG, Q12HRS
     Route: 042
     Dates: start: 20160608
  34. FERROUS SULFATE. [Concomitant]
     Active Substance: FERROUS SULFATE
     Dosage: 325 MG, TID
     Dates: start: 20160605
  35. FOLIC ACID. [Concomitant]
     Active Substance: FOLIC ACID
     Dosage: 1 MG, QD
     Route: 048
     Dates: start: 20160605

REACTIONS (58)
  - Cough [Recovered/Resolved]
  - Respiratory distress [Recovered/Resolved]
  - Pyrexia [Recovered/Resolved]
  - Sepsis [Recovering/Resolving]
  - Apraxia [Recovering/Resolving]
  - Pulmonary hypertension [Unknown]
  - Eye disorder [Recovered/Resolved]
  - Skin disorder [Not Recovered/Not Resolved]
  - Extrapyramidal disorder [Recovered/Resolved]
  - Dysphonia [Recovering/Resolving]
  - Oral candidiasis [Recovered/Resolved]
  - Antimitochondrial antibody [Not Recovered/Not Resolved]
  - Hepatic ischaemia [Unknown]
  - Acute respiratory distress syndrome [Recovered/Resolved]
  - Blood urea increased [Not Recovered/Not Resolved]
  - Tachycardia [Recovered/Resolved with Sequelae]
  - Atrial fibrillation [Unknown]
  - Septic shock [Recovered/Resolved]
  - Polyneuropathy [Unknown]
  - Vasculitis [Unknown]
  - Ischaemic hepatitis [Recovering/Resolving]
  - Respiratory tract infection [Recovered/Resolved]
  - Acute respiratory failure [Recovered/Resolved]
  - Urine output decreased [Not Recovered/Not Resolved]
  - Arrhythmia supraventricular [Recovered/Resolved with Sequelae]
  - Dizziness [Recovered/Resolved with Sequelae]
  - Diarrhoea [Recovered/Resolved]
  - Dehydration [Unknown]
  - Blood creatinine increased [Not Recovered/Not Resolved]
  - Atrial flutter [Recovered/Resolved with Sequelae]
  - Thrombocytopenia [Recovered/Resolved]
  - Anaemia [Recovered/Resolved with Sequelae]
  - Transfusion [Unknown]
  - Buttock injury [Not Recovered/Not Resolved]
  - Condition aggravated [Unknown]
  - Pneumonia [Recovered/Resolved]
  - Renal failure [Not Recovered/Not Resolved]
  - Metabolic acidosis [Not Recovered/Not Resolved]
  - Renal tubular necrosis [Recovered/Resolved]
  - Clostridium difficile infection [Unknown]
  - Leukocytosis [Unknown]
  - Tachypnoea [Recovered/Resolved]
  - Hypoxia [Recovered/Resolved]
  - Eye movement disorder [Recovered/Resolved]
  - International normalised ratio increased [Unknown]
  - Urinary tract infection [Recovered/Resolved]
  - Cor pulmonale acute [Recovered/Resolved]
  - Right ventricular failure [Recovered/Resolved]
  - Congestive hepatopathy [Unknown]
  - Liver function test increased [Not Recovered/Not Resolved]
  - Transaminases increased [Not Recovered/Not Resolved]
  - Blood alkaline phosphatase increased [Not Recovered/Not Resolved]
  - Hypotension [Unknown]
  - Dyspnoea [Recovered/Resolved]
  - Metabolic encephalopathy [Recovering/Resolving]
  - Deep vein thrombosis [Recovering/Resolving]
  - Antinuclear antibody increased [Not Recovered/Not Resolved]
  - Double stranded DNA antibody [Not Recovered/Not Resolved]

NARRATIVE: CASE EVENT DATE: 20160529
